FAERS Safety Report 5372304-X (Version None)
Quarter: 2007Q2

REPORT INFORMATION
  Report Type: 
  Country: None (occurrence: None)
  Receive Date: 20070620
  Receipt Date: 20070320
  Transmission Date: 20071010
  Serious: No
  Sender: FDA-Public Use
  Company Number: 2007RL000125

PATIENT
  Age: 71 Year
  Sex: Male

DRUGS (4)
  1. OMACOR [Suspect]
     Indication: DRUG USE FOR UNKNOWN INDICATION
     Dosage: 2 GM; BID; PO
     Route: 048
     Dates: start: 20070302
  2. ASPIRIN CHILDREN [Concomitant]
  3. PLAVIX [Concomitant]
  4. OTHER MEDS [Concomitant]

REACTIONS (1)
  - FLUSHING [None]
